FAERS Safety Report 20621321 (Version 3)
Quarter: 2022Q2

REPORT INFORMATION
  Report Type: Spontaneous
  Country: US (occurrence: US)
  Receive Date: 20220322
  Receipt Date: 20220411
  Transmission Date: 20220721
  Serious: Yes (Other)
  Sender: FDA-Public Use
  Company Number: US-PFIZER INC-202200383838

PATIENT
  Age: 62 Year
  Sex: Female

DRUGS (2)
  1. XELJANZ XR [Suspect]
     Active Substance: TOFACITINIB CITRATE
     Dosage: UNK
     Dates: start: 20220305
  2. XELJANZ XR [Suspect]
     Active Substance: TOFACITINIB CITRATE
     Dosage: UNK
     Dates: start: 20220306

REACTIONS (16)
  - Cerebrovascular accident [Unknown]
  - Hernia [Unknown]
  - Gait inability [Unknown]
  - Joint swelling [Unknown]
  - Constipation [Recovered/Resolved]
  - Pain in extremity [Recovering/Resolving]
  - Anaemia [Unknown]
  - Hypoacusis [Unknown]
  - Post-traumatic stress disorder [Unknown]
  - Eating disorder [Unknown]
  - Arthralgia [Unknown]
  - Pain [Unknown]
  - Emotional disorder [Unknown]
  - Crying [Unknown]
  - Stress [Unknown]
  - Headache [Unknown]

NARRATIVE: CASE EVENT DATE: 20220101
